FAERS Safety Report 9986001 (Version 2)
Quarter: 2014Q1

REPORT INFORMATION
  Report Type: Spontaneous
  Country: FR (occurrence: FR)
  Receive Date: 20140307
  Receipt Date: 20140313
  Transmission Date: 20141002
  Serious: Yes (Hospitalization)
  Sender: FDA-Public Use
  Company Number: FR-009507513-1403FRA002751

PATIENT
  Sex: Male
  Weight: 67 kg

DRUGS (7)
  1. SINEMET UNSCORED TABLET [Suspect]
     Dosage: UNK
     Route: 048
  2. MODOPAR [Suspect]
     Indication: PARKINSON^S DISEASE
     Route: 048
  3. SIFROL [Suspect]
     Route: 047
  4. APROVEL [Concomitant]
     Route: 065
  5. LANTUS [Concomitant]
     Route: 065
  6. NOVO-NORM [Concomitant]
     Route: 065
  7. METFORMIN [Concomitant]
     Route: 065

REACTIONS (2)
  - Vertigo [Recovering/Resolving]
  - Muscular weakness [Recovering/Resolving]
